FAERS Safety Report 4638164-7 (Version None)
Quarter: 2005Q2

REPORT INFORMATION
  Report Type: 
  Country: None (occurrence: None)
  Receive Date: 20050415
  Receipt Date: 20050404
  Transmission Date: 20051028
  Serious: Yes (Life-Threatening, Hospitalization)
  Sender: FDA-Public Use
  Company Number: SUS1-2005-00269

PATIENT
  Age: 10 Year
  Sex: Male
  Weight: 24.9 kg

DRUGS (2)
  1. ADDERALL 10 [Suspect]
     Indication: ATTENTION DEFICIT/HYPERACTIVITY DISORDER
     Dosage: 10 MG, 1X/DAY:QD, ORAL
     Route: 048
     Dates: start: 20050228, end: 20050306
  2. ADDERALL 10 [Concomitant]

REACTIONS (4)
  - AFFECT LABILITY [None]
  - SOCIAL AVOIDANT BEHAVIOUR [None]
  - STEVENS-JOHNSON SYNDROME [None]
  - TOXIC EPIDERMAL NECROLYSIS [None]
